FAERS Safety Report 9775318 (Version 1)
Quarter: 2013Q4

REPORT INFORMATION
  Report Type: Spontaneous
  Country: JP (occurrence: JP)
  Receive Date: 20131220
  Receipt Date: 20131220
  Transmission Date: 20140711
  Serious: Yes (Other)
  Sender: FDA-Public Use
  Company Number: JP-GILEAD-2013-0090344

PATIENT
  Sex: Male

DRUGS (3)
  1. HEPSERA [Suspect]
     Indication: CHRONIC HEPATITIS B
     Dosage: UNK
     Route: 048
     Dates: start: 2004
  2. HEPSERA [Suspect]
     Dosage: 1 DF, UNK
     Route: 048
  3. ZEFIX /01221401/ [Suspect]
     Indication: CHRONIC HEPATITIS B
     Dosage: UNK
     Route: 048
     Dates: start: 2002

REACTIONS (4)
  - Rib fracture [Recovering/Resolving]
  - Drug tolerance [Unknown]
  - Fanconi syndrome acquired [Unknown]
  - Renal impairment [Unknown]
